FAERS Safety Report 11223093 (Version 1)
Quarter: 2015Q2

REPORT INFORMATION
  Report Type: Spontaneous
  Country: BR (occurrence: BR)
  Receive Date: 20150626
  Receipt Date: 20150626
  Transmission Date: 20150821
  Serious: Yes (Other)
  Sender: FDA-Public Use
  Company Number: BR-ABBVIE-15P-020-1416936-00

PATIENT
  Sex: Female
  Weight: 64 kg

DRUGS (10)
  1. TYLEX [Concomitant]
     Active Substance: ACETAMINOPHEN\CODEINE PHOSPHATE
     Indication: PAIN
     Route: 048
     Dates: start: 20150618
  2. SINVASTATINA [Concomitant]
     Active Substance: SIMVASTATIN
     Indication: BLOOD CHOLESTEROL INCREASED
     Dosage: AFTER THE LAST MEAL
     Route: 048
  3. ASPIRIN. [Concomitant]
     Active Substance: ASPIRIN
     Indication: ANTICOAGULANT THERAPY
     Dosage: AFTER LUNCH
     Route: 048
  4. ADDERA D3 [Concomitant]
     Active Substance: CHOLECALCIFEROL
     Indication: VITAMIN D
     Route: 048
     Dates: start: 201503
  5. LEXOTAN [Concomitant]
     Active Substance: BROMAZEPAM
     Indication: SEDATIVE THERAPY
     Dosage: ADMINISTER WHEN SHE IS ANXIOUS; HALF TABLET AT NIGHT
     Route: 048
     Dates: start: 1989
  6. DEPAKOTE ER [Suspect]
     Active Substance: DIVALPROEX SODIUM
     Indication: HEADACHE
     Dosage: AT NIGHT
     Route: 048
  7. HIGROTON [Concomitant]
     Active Substance: CHLORTHALIDONE
     Indication: BLOOD PRESSURE
     Dosage: ONCE A DAY, IN THE MORNING, AT 08:00AM
     Route: 048
     Dates: start: 201504
  8. OMEPRAZOLE. [Concomitant]
     Active Substance: OMEPRAZOLE
     Indication: GASTRIC DISORDER
     Dosage: AT 6 O^CLOCK
     Route: 048
     Dates: start: 201410
  9. LOSARTAN [Concomitant]
     Active Substance: LOSARTAN
     Indication: BLOOD PRESSURE
     Dosage: DAILY DOSE: 100 MG; IN THE MORNING
     Route: 048
     Dates: start: 201504
  10. ATENSINA [Concomitant]
     Active Substance: CLONIDINE
     Indication: BLOOD PRESSURE
     Dosage: AT 02:00PM AND 10:00PM
     Route: 048
     Dates: start: 201504

REACTIONS (7)
  - Cataract [Unknown]
  - Endocarditis [Unknown]
  - Cardiac operation [Unknown]
  - Pneumonia klebsiella [Unknown]
  - Dizziness [Not Recovered/Not Resolved]
  - Inner ear disorder [Not Recovered/Not Resolved]
  - Headache [Not Recovered/Not Resolved]

NARRATIVE: CASE EVENT DATE: 2014
